FAERS Safety Report 15744962 (Version 1)
Quarter: 2018Q4

REPORT INFORMATION
  Report Type: Spontaneous
  Country: US (occurrence: US)
  Receive Date: 20181220
  Receipt Date: 20181220
  Transmission Date: 20190205
  Serious: Yes (Hospitalization)
  Sender: FDA-Public Use
  Company Number: None

PATIENT
  Sex: Male

DRUGS (11)
  1. TALTZ [Suspect]
     Active Substance: IXEKIZUMAB
     Indication: PSORIASIS
     Dosage: ?          OTHER FREQUENCY:EVERY 4 WEEKS;?
     Route: 058
     Dates: start: 20170708
  2. LYRICA [Concomitant]
     Active Substance: PREGABALIN
  3. DILTIAZEM 30MG [Concomitant]
  4. ADVAIR DISKU 250/50 [Concomitant]
  5. LASIX 20MG [Concomitant]
  6. SPIRIVA [Concomitant]
     Active Substance: TIOTROPIUM BROMIDE MONOHYDRATE
  7. AMITIZA [Concomitant]
     Active Substance: LUBIPROSTONE
  8. ASPIRIN 81MG [Concomitant]
     Active Substance: ASPIRIN
  9. SINGULAIR [Concomitant]
     Active Substance: MONTELUKAST SODIUM
  10. CETIRIZINE 5MG/5ML [Concomitant]
  11. DIGOX 0.125MG [Concomitant]

REACTIONS (1)
  - Psoriasis [None]
